FAERS Safety Report 8866350 (Version 2)
Quarter: 2012Q4

REPORT INFORMATION
  Report Type: 
  Country: US (occurrence: US)
  Receive Date: 20121025
  Receipt Date: 20121212
  Transmission Date: 20130627
  Serious: Yes (Other)
  Sender: FDA-Public Use
  Company Number: US-PFIZER INC-2012267266

PATIENT
  Age: 79 Year
  Sex: Male
  Weight: 73.92 kg

DRUGS (3)
  1. NEURONTIN [Suspect]
     Indication: BACK PAIN
     Dosage: 300 mg, 2x/day
     Dates: start: 2009, end: 201210
  2. NEURONTIN [Suspect]
     Indication: NEUROPATHY
     Dosage: 300 mg, 1x/day
     Dates: start: 201210
  3. ZESTRIL [Concomitant]
     Indication: BLOOD PRESSURE HIGH
     Dosage: 40 mg, daily

REACTIONS (3)
  - Suicidal ideation [Recovering/Resolving]
  - Depression [Recovering/Resolving]
  - Abnormal dreams [Recovering/Resolving]
